FAERS Safety Report 8114764-7 (Version None)
Quarter: 2012Q1

REPORT INFORMATION
  Report Type: 
  Country: None (occurrence: None)
  Receive Date: 20120206
  Receipt Date: 20120131
  Transmission Date: 20120608
  Serious: Yes (Death)
  Sender: FDA-Public Use
  Company Number: US-CELGENEUS-163-21880-11110940

PATIENT
  Sex: Male

DRUGS (12)
  1. COZAAR [Concomitant]
     Dosage: 100 MILLIGRAM
     Route: 065
  2. REVLIMID [Suspect]
     Dosage: 10-5MG
     Route: 048
     Dates: start: 20091101, end: 20110901
  3. LOPRESSOR [Concomitant]
     Dosage: 25 MILLIGRAM
     Route: 065
  4. ALLOPURINOL [Concomitant]
     Dosage: 200 MILLIGRAM
     Route: 065
  5. INSULIN [Concomitant]
     Dosage: SLIDING SCALE
     Route: 065
  6. REVLIMID [Suspect]
     Indication: MULTIPLE MYELOMA
     Dosage: 10 MILLIGRAM
     Route: 048
     Dates: start: 20090901
  7. REVLIMID [Suspect]
     Dosage: 5MG-10MG
     Route: 048
     Dates: start: 20100101, end: 20100101
  8. SYNTHROID [Concomitant]
     Dosage: 50 MICROGRAM
     Route: 065
  9. PREDNISONE TAB [Concomitant]
     Dosage: 5 MILLIGRAM
     Route: 065
  10. PROTONIX [Concomitant]
     Dosage: 40 MILLIGRAM
     Route: 065
  11. LEXAPRO [Concomitant]
     Dosage: 10 MILLIGRAM
     Route: 065
  12. CLONIDINE [Concomitant]
     Dosage: .1 MILLIGRAM
     Route: 065

REACTIONS (1)
  - MULTIPLE MYELOMA [None]
